FAERS Safety Report 23077838 (Version 1)
Quarter: 2023Q4

REPORT INFORMATION
  Report Type: Spontaneous
  Country: US (occurrence: US)
  Receive Date: 20231018
  Receipt Date: 20231018
  Transmission Date: 20240109
  Serious: Yes (Hospitalization)
  Sender: FDA-Public Use
  Company Number: US-STRIDES ARCOLAB LIMITED-2023SP009688

PATIENT
  Age: 34 Year
  Sex: Female
  Weight: 34.8 kg

DRUGS (2)
  1. BALSALAZIDE DISODIUM [Suspect]
     Active Substance: BALSALAZIDE DISODIUM
     Indication: Crohn^s disease
     Dosage: UNK
     Route: 048
  2. MESALAMINE [Suspect]
     Active Substance: MESALAMINE
     Indication: Crohn^s disease
     Dosage: UNK
     Route: 054

REACTIONS (2)
  - Drug ineffective for unapproved indication [Unknown]
  - Disease progression [Unknown]
